FAERS Safety Report 8341567-0 (Version None)
Quarter: 2012Q2

REPORT INFORMATION
  Report Type: 
  Country: None (occurrence: None)
  Receive Date: 20120507
  Receipt Date: 20120426
  Transmission Date: 20120825
  Serious: Yes (Other)
  Sender: FDA-Public Use
  Company Number: US-ASTRAZENECA-2011SE18937

PATIENT
  Age: 50 Year
  Sex: Male

DRUGS (2)
  1. CRESTOR [Suspect]
     Indication: BLOOD CHOLESTEROL INCREASED
     Route: 048
     Dates: start: 20070101
  2. DIOVAN [Concomitant]

REACTIONS (6)
  - INTERVERTEBRAL DISC PROTRUSION [None]
  - BACK INJURY [None]
  - FALL [None]
  - BURNING SENSATION [None]
  - SPINAL CORD INJURY [None]
  - HEMIPARESIS [None]
